FAERS Safety Report 6565144-7 (Version None)
Quarter: 2010Q1

REPORT INFORMATION
  Report Type: 
  Country: None (occurrence: None)
  Receive Date: 20100201
  Receipt Date: 20100127
  Transmission Date: 20100710
  Serious: Yes (Hospitalization)
  Sender: FDA-Public Use
  Company Number: B0604162A

PATIENT
  Sex: Male

DRUGS (3)
  1. KIVEXA [Suspect]
     Indication: HIV INFECTION
     Dosage: 1TAB PER DAY
     Route: 048
     Dates: start: 20091016, end: 20091024
  2. PREZISTA [Suspect]
     Indication: HIV INFECTION
     Dosage: 600MG TWICE PER DAY
     Route: 048
     Dates: start: 20091016, end: 20091024
  3. NORVIR [Suspect]
     Indication: HIV INFECTION
     Dosage: 100MG TWICE PER DAY
     Route: 048
     Dates: start: 20091016, end: 20091024

REACTIONS (9)
  - BLOOD CREATININE INCREASED [None]
  - CHILLS [None]
  - HYPERSENSITIVITY [None]
  - INFLUENZA LIKE ILLNESS [None]
  - MALAISE [None]
  - MYALGIA [None]
  - PYREXIA [None]
  - RASH PRURITIC [None]
  - RENAL FAILURE ACUTE [None]
